FAERS Safety Report 24665515 (Version 1)
Quarter: 2024Q4

REPORT INFORMATION
  Report Type: Spontaneous
  Country: US (occurrence: US)
  Receive Date: 20241126
  Receipt Date: 20241126
  Transmission Date: 20250115
  Serious: No
  Sender: MERZ
  Company Number: US-Merz Pharmaceuticals GmbH-2024110000021

PATIENT

DRUGS (1)
  1. XEOMIN [Suspect]
     Active Substance: INCOBOTULINUMTOXINA
     Indication: Product used for unknown indication
     Dates: start: 20241010, end: 20241010

REACTIONS (2)
  - Gastrooesophageal reflux disease [Unknown]
  - Urticaria [Unknown]

NARRATIVE: CASE EVENT DATE: 20241017
